FAERS Safety Report 15138140 (Version 2)
Quarter: 2018Q3

REPORT INFORMATION
  Report Type: Spontaneous
  Country: FR (occurrence: FR)
  Receive Date: 20180713
  Receipt Date: 20180912
  Transmission Date: 20181010
  Serious: Yes (Hospitalization)
  Sender: FDA-Public Use
  Company Number: FR-TEVA-2018-FR-925113

PATIENT
  Age: 73 Year
  Sex: Female
  Weight: 72 kg

DRUGS (7)
  1. BACTRIM [Suspect]
     Active Substance: SULFAMETHOXAZOLE\TRIMETHOPRIM
     Indication: OSTEITIS
     Dosage: 2400 MILLIGRAM DAILY;
     Route: 048
     Dates: start: 20180522, end: 20180528
  2. GLICLAZIDE [Suspect]
     Active Substance: GLICLAZIDE
     Dosage: 60 MILLIGRAM DAILY;
     Route: 048
     Dates: end: 20180528
  3. DIGOXINE [Suspect]
     Active Substance: DIGOXIN
     Indication: ATRIAL FIBRILLATION
     Dosage: 125 MICROGRAM DAILY;
     Route: 048
     Dates: end: 20180529
  4. METOCLOPRAMIDE. [Concomitant]
     Active Substance: METOCLOPRAMIDE
     Dosage: 10 MILLIGRAM DAILY;
     Route: 048
     Dates: start: 20180519, end: 20180526
  5. TEICOPLANINE [Concomitant]
     Active Substance: TEICOPLANIN
     Dosage: 800 MILLIGRAM DAILY;
     Route: 058
     Dates: start: 20180525
  6. METFORMIN [Suspect]
     Active Substance: METFORMIN HYDROCHLORIDE
     Dosage: 3000 MILLIGRAM DAILY;
     Route: 048
     Dates: end: 20180528
  7. RIFAMPICINE [Concomitant]
     Active Substance: RIFAMPIN
     Dosage: 900 MILLIGRAM DAILY;
     Route: 065
     Dates: start: 20180522, end: 20180528

REACTIONS (1)
  - Confusional state [Recovered/Resolved]

NARRATIVE: CASE EVENT DATE: 20180526
